FAERS Safety Report 15628913 (Version 5)
Quarter: 2019Q4

REPORT INFORMATION
  Report Type: Report from Study
  Country: JP (occurrence: JP)
  Receive Date: 20181116
  Receipt Date: 20191128
  Transmission Date: 20200122
  Serious: Yes (Death, Hospitalization, Other)
  Sender: FDA-Public Use
  Company Number: JP-JNJFOC-20181119368

PATIENT
  Age: 67 Year
  Sex: Male
  Weight: 59.1 kg

DRUGS (4)
  1. LENALIDOMIDE [Concomitant]
     Active Substance: LENALIDOMIDE
     Indication: PLASMA CELL MYELOMA
     Dosage: CYCLICAL DOSE
     Route: 048
     Dates: start: 20171206, end: 20180214
  2. DEXAMETHASONE. [Concomitant]
     Active Substance: DEXAMETHASONE
     Indication: PLASMA CELL MYELOMA
     Route: 065
     Dates: start: 20171206, end: 20180808
  3. DARZALEX [Suspect]
     Active Substance: DARATUMUMAB
     Indication: PLASMA CELL MYELOMA
     Dosage: DOSAGE FORM-INJECTION, CYCLICAL DOSE.
     Route: 041
     Dates: start: 20171206, end: 20180807
  4. VELCADE [Suspect]
     Active Substance: BORTEZOMIB
     Indication: PLASMA CELL MYELOMA
     Dosage: DOSAGE FORM-INJECTION, CYCLICAL DOSE.
     Route: 058
     Dates: start: 20180522, end: 20180807

REACTIONS (6)
  - Plasma cell myeloma [Fatal]
  - Ventricular tachycardia [Recovered/Resolved]
  - Infusion related reaction [Recovered/Resolved]
  - White blood cell count decreased [Recovered/Resolved]
  - Oropharyngeal discomfort [Recovered/Resolved]
  - Platelet count decreased [Recovering/Resolving]

NARRATIVE: CASE EVENT DATE: 20171206
